FAERS Safety Report 22650593 (Version 1)
Quarter: 2023Q2

REPORT INFORMATION
  Report Type: Spontaneous
  Country: US (occurrence: None)
  Receive Date: 20230627
  Receipt Date: 20230627
  Transmission Date: 20230721
  Serious: Yes (Hospitalization, Disabling)
  Sender: FDA-Public Use
  Company Number: None

PATIENT
  Age: 50 Year
  Sex: Female
  Weight: 59.8 kg

DRUGS (1)
  1. TECLISTAMAB [Suspect]
     Active Substance: TECLISTAMAB
     Indication: Plasma cell myeloma
     Route: 058
     Dates: start: 20230304

REACTIONS (7)
  - Plasma cell myeloma [None]
  - Cytokine release syndrome [None]
  - Pain [None]
  - Tumour lysis syndrome [None]
  - Urinary incontinence [None]
  - Gait disturbance [None]
  - Anal incontinence [None]

NARRATIVE: CASE EVENT DATE: 20230306
